FAERS Safety Report 4390602-3 (Version None)
Quarter: 2004Q2

REPORT INFORMATION
  Report Type: 
  Country: None (occurrence: None)
  Receive Date: 20040630
  Receipt Date: 20040623
  Transmission Date: 20050107
  Serious: Yes (Other)
  Sender: FDA-Public Use
  Company Number: 24372

PATIENT
  Age: 6 Year
  Sex: Female

DRUGS (3)
  1. ALDARA [Suspect]
     Indication: MOLLUSCUM CONTAGIOSUM
     Dosage: (1 SACHET, 3 IN 1 WEEK (S)), TOPICAL
     Route: 061
     Dates: start: 20040526, end: 20040617
  2. ELIDEL [Suspect]
  3. DERMATOP [Suspect]

REACTIONS (4)
  - DEHYDRATION [None]
  - DIARRHOEA [None]
  - LIVER FUNCTION TEST ABNORMAL [None]
  - VOMITING [None]
